FAERS Safety Report 10021539 (Version 1)
Quarter: 2014Q1

REPORT INFORMATION
  Report Type: Report from Study
  Country: ZA (occurrence: ZA)
  Receive Date: 20140319
  Receipt Date: 20140319
  Transmission Date: 20141002
  Serious: No
  Sender: FDA-Public Use
  Company Number: PHHY2014ZA033081

PATIENT
  Sex: Male

DRUGS (3)
  1. GLIVEC [Suspect]
     Indication: CHRONIC MYELOID LEUKAEMIA
     Dosage: 400 MG, DAILY
  2. TASIGNA [Suspect]
     Dosage: UNK UKN, UNK
  3. DASATINIB [Suspect]
     Dosage: UNK UKN, UNK

REACTIONS (3)
  - Drug resistance [Unknown]
  - White blood cell count increased [Unknown]
  - Chromosome analysis abnormal [Unknown]
